FAERS Safety Report 9303621 (Version 1)
Quarter: 2013Q2

REPORT INFORMATION
  Report Type: Spontaneous
  Country: US (occurrence: US)
  Receive Date: 20130522
  Receipt Date: 20130522
  Transmission Date: 20140414
  Serious: No
  Sender: FDA-Public Use
  Company Number: US-PFIZER INC-2013154419

PATIENT
  Age: 31 Year
  Sex: Male
  Weight: 127 kg

DRUGS (1)
  1. VIAGRA [Suspect]
     Indication: SUBSTANCE USE
     Dosage: 50MG TABLET SPLIT IN HALF, 2X/WEEK
     Dates: end: 201305

REACTIONS (1)
  - Drug ineffective [Unknown]
